FAERS Safety Report 10160319 (Version 1)
Quarter: 2014Q2

REPORT INFORMATION
  Report Type: Spontaneous
  Country: GB (occurrence: GB)
  Receive Date: 20140508
  Receipt Date: 20140508
  Transmission Date: 20141212
  Serious: Yes (Disabling)
  Sender: FDA-Public Use
  Company Number: GB-PFIZER INC-2014122255

PATIENT
  Age: 27 Year
  Sex: Female

DRUGS (11)
  1. SILDENAFIL CITRATE [Suspect]
     Indication: PULMONARY HYPERTENSION
     Dosage: UNK
     Dates: start: 20130812
  2. BISOPROLOL [Concomitant]
     Dosage: UNK
  3. BUMETANIDE [Concomitant]
     Dosage: UNK
  4. CARVEDILOL [Concomitant]
     Dosage: UNK
  5. DIGOXIN [Concomitant]
     Dosage: UNK
  6. FERROUS FUMARATE [Concomitant]
     Dosage: UNK
  7. FOLIC ACID [Concomitant]
     Dosage: UNK
  8. LISINOPRIL [Concomitant]
     Dosage: UNK
  9. OMEPRAZOLE [Concomitant]
     Dosage: UNK
  10. SPIRONOLACTONE [Concomitant]
     Dosage: UNK
  11. WARFARIN [Concomitant]
     Dosage: UNK

REACTIONS (1)
  - Amenorrhoea [Not Recovered/Not Resolved]
